FAERS Safety Report 25287749 (Version 1)
Quarter: 2025Q2

REPORT INFORMATION
  Report Type: Spontaneous
  Country: US (occurrence: US)
  Receive Date: 20250509
  Receipt Date: 20250509
  Transmission Date: 20250717
  Serious: No
  Sender: MYLAN
  Company Number: US-MYLANLABS-2025M1037420

PATIENT
  Age: 69 Year
  Sex: Female

DRUGS (8)
  1. ESTRADIOL TRANSDERMAL SYSTEM [Suspect]
     Active Substance: ESTRADIOL
     Indication: Product used for unknown indication
     Dosage: 0.037 MILLIGRAM, QD (PER DAY, ONCE WEEKLY)
     Dates: start: 202504, end: 202504
  2. ESTRADIOL TRANSDERMAL SYSTEM [Suspect]
     Active Substance: ESTRADIOL
     Dosage: 0.037 MILLIGRAM, QD (PER DAY, ONCE WEEKLY)
     Route: 062
     Dates: start: 202504, end: 202504
  3. ESTRADIOL TRANSDERMAL SYSTEM [Suspect]
     Active Substance: ESTRADIOL
     Dosage: 0.037 MILLIGRAM, QD (PER DAY, ONCE WEEKLY)
     Route: 062
     Dates: start: 202504, end: 202504
  4. ESTRADIOL TRANSDERMAL SYSTEM [Suspect]
     Active Substance: ESTRADIOL
     Dosage: 0.037 MILLIGRAM, QD (PER DAY, ONCE WEEKLY)
     Dates: start: 202504, end: 202504
  5. PROGESTERONE [Suspect]
     Active Substance: PROGESTERONE
     Indication: Product used for unknown indication
  6. PROGESTERONE [Suspect]
     Active Substance: PROGESTERONE
     Route: 048
  7. PROGESTERONE [Suspect]
     Active Substance: PROGESTERONE
     Route: 048
  8. PROGESTERONE [Suspect]
     Active Substance: PROGESTERONE

REACTIONS (6)
  - Dizziness [Recovered/Resolved]
  - Visual impairment [Unknown]
  - Drug effect less than expected [Unknown]
  - Product substitution issue [Unknown]
  - Product adhesion issue [Unknown]
  - Product storage error [Unknown]

NARRATIVE: CASE EVENT DATE: 20250401
